FAERS Safety Report 6283043-5 (Version None)
Quarter: 2009Q3

REPORT INFORMATION
  Report Type: 
  Country: None (occurrence: None)
  Receive Date: 20090724
  Receipt Date: 20090608
  Transmission Date: 20100115
  Serious: Yes (Death, Other)
  Sender: FDA-Public Use
  Company Number: US-PURDUE-USA-2009-0039098

PATIENT
  Sex: Female

DRUGS (1)
  1. OXYCONTIN [Suspect]
     Indication: ANALGESIA
     Dosage: UNK
     Dates: start: 19991013, end: 20010101

REACTIONS (5)
  - BULIMIA NERVOSA [None]
  - DRUG DEPENDENCE [None]
  - MALNUTRITION [None]
  - PNEUMONIA [None]
  - SEPSIS [None]
